FAERS Safety Report 19068385 (Version 1)
Quarter: 2021Q1

REPORT INFORMATION
  Report Type: Spontaneous
  Country: US (occurrence: US)
  Receive Date: 20210327
  Receipt Date: 20210327
  Transmission Date: 20210420
  Serious: No
  Sender: FDA-Public Use
  Company Number: None

PATIENT
  Age: 44 Year
  Sex: Female
  Weight: 54 kg

DRUGS (5)
  1. MAGNESIUM GLYCINATE 400MG [Concomitant]
  2. CALCIUM CITRATE 630MG [Concomitant]
  3. METHYLPHENIDATE 36MG ER OSM TABLET [Suspect]
     Active Substance: METHYLPHENIDATE
     Indication: ATTENTION DEFICIT HYPERACTIVITY DISORDER
     Dosage: ?          QUANTITY:1 TABLET(S);?
     Route: 048
     Dates: start: 20210201, end: 20210326
  4. OMEGA?3 690MG [Concomitant]
  5. VITAMIN D 400IU [Concomitant]

REACTIONS (6)
  - Palpitations [None]
  - Drug ineffective [None]
  - Decreased appetite [None]
  - Insomnia [None]
  - Suspected product quality issue [None]
  - Product substitution issue [None]

NARRATIVE: CASE EVENT DATE: 20210208
